FAERS Safety Report 21510843 (Version 1)
Quarter: 2022Q4

REPORT INFORMATION
  Report Type: Spontaneous
  Country: DE (occurrence: DE)
  Receive Date: 20221026
  Receipt Date: 20221026
  Transmission Date: 20230113
  Serious: Yes (Hospitalization)
  Sender: FDA-Public Use
  Company Number: DE-ADRED-07432-01

PATIENT
  Age: 64 Year
  Sex: Male
  Weight: 60 kg

DRUGS (2)
  1. CAPECITABINE [Suspect]
     Active Substance: CAPECITABINE
     Indication: Product used for unknown indication
     Dosage: 1000 MG, 1-0-1-0
     Route: 048
  2. NALOXONE HYDROCHLORIDE\OXYCODONE HYDROCHLORIDE [Suspect]
     Active Substance: NALOXONE HYDROCHLORIDE\OXYCODONE HYDROCHLORIDE
     Indication: Product used for unknown indication
     Dosage: 10|20 MG, 1-0-1-0
     Route: 065

REACTIONS (5)
  - Pain [Unknown]
  - Abdominal pain lower [Unknown]
  - Constipation [Unknown]
  - Pain in extremity [Unknown]
  - Hyponatraemia [Unknown]
